FAERS Safety Report 8618491-9 (Version None)
Quarter: 2012Q3

REPORT INFORMATION
  Report Type: 
  Country: None (occurrence: None)
  Receive Date: 20120824
  Receipt Date: 20120808
  Transmission Date: 20120928
  Serious: Yes (Hospitalization)
  Sender: FDA-Public Use
  Company Number: JP-009507513-1207JPN009379

PATIENT

DRUGS (18)
  1. REBETOL [Suspect]
     Indication: HEPATITIS C
     Dosage: 400 MG, QD
     Route: 048
     Dates: start: 20120530, end: 20120612
  2. PREDNISOLONE [Suspect]
     Dosage: 50 MG, QD, FORMULATION : POR
     Route: 048
     Dates: start: 20120710
  3. ALENDRONATE SODIUM [Concomitant]
     Indication: PROPHYLAXIS
     Dosage: 35 MG, QW
     Route: 048
     Dates: start: 20120709
  4. TELAVIC [Suspect]
     Indication: HEPATITIS C
     Dosage: 1500 MG, QD
     Route: 048
     Dates: start: 20120530, end: 20120707
  5. PREDNISOLONE [Suspect]
     Dosage: 20 MG, QD, FORMULATION : POR
     Route: 048
     Dates: start: 20120702
  6. PREDNISOLONE [Suspect]
     Dosage: 10 MG, QD, FORMULATION : POR
     Route: 048
     Dates: start: 20120704
  7. REBETOL [Suspect]
     Dosage: 200 MG, QD
     Route: 048
     Dates: start: 20120613, end: 20120707
  8. ACETAMINOPHEN [Concomitant]
     Dosage: 200 MG, QD
     Route: 054
     Dates: start: 20120627
  9. PEG-INTRON [Suspect]
     Indication: HEPATITIS C
     Dosage: 1.4 MICROGRAM PER KILOGRAM, QW
     Route: 058
     Dates: start: 20120530, end: 20120704
  10. CLOBETASOL PROPIONATE [Concomitant]
     Dosage: DAILY DOSE UNKNOWN, PROPERLY/DAY, AS NEEDED, FORMULATION : OIT
     Route: 061
     Dates: start: 20120604
  11. KINDAVATE [Concomitant]
     Dosage: PROPERLY/DAY, AS NEEDED, FORMULATION : OIT
     Route: 061
     Dates: start: 20120608
  12. LEVOFLOXACIN [Concomitant]
     Dosage: DAILY DOSE UNKNOWN, PROPERLY/DAY
     Route: 031
     Dates: start: 20120725
  13. PREDNISOLONE [Suspect]
     Dosage: 20 MG, QD, FORMULATION : POR
     Route: 048
     Dates: start: 20120706
  14. PREDNISOLONE [Suspect]
     Dosage: 60 MG, QD, FORMULATION : POR
     Route: 048
     Dates: start: 20120708
  15. ALLEGRA [Concomitant]
     Dosage: 120 MG, QD, FORMULATION : POR
     Route: 048
     Dates: start: 20120607
  16. FAMOTIDINE [Concomitant]
     Indication: PROPHYLAXIS
     Dosage: 40 MG, QD, FORMULATION : POR
     Route: 048
     Dates: start: 20120702, end: 20120707
  17. RABEPRAZOLE SODIUM [Concomitant]
     Indication: PROPHYLAXIS
     Dosage: 20 MG, QD
     Route: 048
     Dates: start: 20120708
  18. AZUNOL (SODIUM GUALENATE) [Concomitant]
     Dosage: PROPERLY/DAY, AS NEEDED, DAILY DOSE UNKNOWN, FORMULATION : MWH
     Route: 049
     Dates: start: 20120720

REACTIONS (1)
  - RASH [None]
